FAERS Safety Report 4416212-7 (Version None)
Quarter: 2004Q3

REPORT INFORMATION
  Report Type: 
  Country: None (occurrence: None)
  Receive Date: 20040803
  Receipt Date: 20040720
  Transmission Date: 20050211
  Serious: Yes (Hospitalization)
  Sender: FDA-Public Use
  Company Number: US-JNJFOC-20040705906

PATIENT
  Age: 46 Year
  Sex: Female

DRUGS (5)
  1. DURAGESIC [Suspect]
     Indication: PAIN
     Dosage: 75 UG/HER, 1 IN 72 HOUR, TRANSDERMAL
     Route: 062
  2. MORPHINE [Concomitant]
  3. ELAVIL [Concomitant]
  4. INDERAL [Concomitant]
  5. LIBRAX [Concomitant]

REACTIONS (9)
  - COGNITIVE DISORDER [None]
  - DEPRESSED LEVEL OF CONSCIOUSNESS [None]
  - DYSARTHRIA [None]
  - FALL [None]
  - HAEMORRHAGE [None]
  - HALLUCINATIONS, MIXED [None]
  - HEAD INJURY [None]
  - MENTAL IMPAIRMENT [None]
  - SKIN LACERATION [None]
